FAERS Safety Report 4892537-6 (Version None)
Quarter: 2006Q1

REPORT INFORMATION
  Report Type: 
  Country: None (occurrence: None)
  Receive Date: 20060126
  Receipt Date: 20060119
  Transmission Date: 20060701
  Serious: Yes (Other)
  Sender: FDA-Public Use
  Company Number: US-JNJFOC-20060104324

PATIENT
  Sex: Female

DRUGS (3)
  1. REMICADE [Suspect]
     Indication: CROHN'S DISEASE
     Dosage: THIS WAS PATIENT'S FIRST INFUSION.
     Route: 042
  2. BENADRYL [Concomitant]
     Indication: PREMEDICATION
  3. CLARITIN [Concomitant]
     Indication: PREMEDICATION

REACTIONS (2)
  - APHASIA [None]
  - INFUSION RELATED REACTION [None]
